FAERS Safety Report 10272649 (Version 1)
Quarter: 2014Q2

REPORT INFORMATION
  Report Type: Spontaneous
  Country: US (occurrence: None)
  Receive Date: 20140630
  Receipt Date: 20140630
  Transmission Date: 20141212
  Serious: Yes (Other)
  Sender: FDA-Public Use
  Company Number: None

PATIENT
  Age: 78 Year
  Sex: Female
  Weight: 80.29 kg

DRUGS (1)
  1. LISINOPRIL [Suspect]
     Indication: BLOOD PRESSURE INCREASED
     Dosage: 1 PILL A DAY
     Route: 048

REACTIONS (8)
  - Diarrhoea [None]
  - Cough [None]
  - Throat tightness [None]
  - Throat irritation [None]
  - Pain in extremity [None]
  - Headache [None]
  - Insomnia [None]
  - Abdominal discomfort [None]
